FAERS Safety Report 16872547 (Version 1)
Quarter: 2019Q4

REPORT INFORMATION
  Report Type: Spontaneous
  Country: ES (occurrence: ES)
  Receive Date: 20191001
  Receipt Date: 20191001
  Transmission Date: 20200122
  Serious: No
  Sender: FDA-Public Use
  Company Number: ES-BEH-2019107415

PATIENT
  Sex: Female

DRUGS (1)
  1. HIZENTRA [Suspect]
     Active Substance: HUMAN IMMUNOGLOBULIN G
     Dosage: 40 GRAM, QW
     Route: 065
     Dates: start: 2014

REACTIONS (4)
  - Injection site nodule [Unknown]
  - Injection site erythema [Unknown]
  - Injection site pain [Unknown]
  - Injection site vesicles [Unknown]
